FAERS Safety Report 5607666-9 (Version None)
Quarter: 2008Q1

REPORT INFORMATION
  Report Type: 
  Country: None (occurrence: None)
  Receive Date: 20080128
  Receipt Date: 20080128
  Transmission Date: 20080703
  Serious: Yes (Other)
  Sender: FDA-Public Use
  Company Number: None

PATIENT
  Age: 41 Year
  Sex: Female
  Weight: 53.0709 kg

DRUGS (2)
  1. AVELOX [Suspect]
     Indication: BRONCHITIS
     Dosage: 400 MG 1 DAILY PO
     Route: 048
     Dates: start: 20080119, end: 20080120
  2. AVELOX [Suspect]
     Indication: SINUSITIS
     Dosage: 400 MG 1 DAILY PO
     Route: 048
     Dates: start: 20080119, end: 20080120

REACTIONS (10)
  - ANXIETY [None]
  - CRYING [None]
  - DIARRHOEA [None]
  - FEAR [None]
  - FEELING ABNORMAL [None]
  - HOT FLUSH [None]
  - IMPAIRED WORK ABILITY [None]
  - NAUSEA [None]
  - PANIC DISORDER [None]
  - SLEEP DISORDER [None]
